FAERS Safety Report 7817415-1 (Version None)
Quarter: 2011Q4

REPORT INFORMATION
  Report Type: 
  Country: None (occurrence: None)
  Receive Date: 20111017
  Receipt Date: 20111010
  Transmission Date: 20120403
  Serious: Yes (Other)
  Sender: FDA-Public Use
  Company Number: DE-ROCHE-1004029

PATIENT
  Sex: Female

DRUGS (2)
  1. OXALIPLATIN [Suspect]
     Indication: METASTATIC GASTRIC CANCER
     Route: 065
  2. XELODA [Suspect]
     Indication: METASTATIC GASTRIC CANCER
     Route: 048

REACTIONS (4)
  - TREMOR [None]
  - FATIGUE [None]
  - APHASIA [None]
  - CHILLS [None]
